FAERS Safety Report 9908405 (Version 1)
Quarter: 2014Q1

REPORT INFORMATION
  Report Type: Spontaneous
  Country: NO (occurrence: NO)
  Receive Date: 20140219
  Receipt Date: 20140219
  Transmission Date: 20141002
  Serious: Yes (Hospitalization)
  Sender: FDA-Public Use
  Company Number: NO-ASTRAZENECA-2014SE11168

PATIENT
  Age: 199 Month
  Sex: Male

DRUGS (4)
  1. SEROQUEL DEPOT [Suspect]
     Indication: BIPOLAR I DISORDER
     Dosage: SLOW DOSAGE INCREASE FROM 50-300 MG PER DAY
     Route: 048
     Dates: start: 20140109, end: 20140125
  2. SEROQUEL DEPOT [Suspect]
     Indication: BIPOLAR I DISORDER
     Route: 048
  3. LARIAM [Concomitant]
  4. OLANZAPINE [Concomitant]

REACTIONS (2)
  - Hypomania [Recovered/Resolved]
  - Somnolence [Recovered/Resolved]
